FAERS Safety Report 13155771 (Version 1)
Quarter: 2017Q1

REPORT INFORMATION
  Report Type: Spontaneous
  Country: US (occurrence: US)
  Receive Date: 20170126
  Receipt Date: 20170126
  Transmission Date: 20170428
  Serious: No
  Sender: FDA-Public Use
  Company Number: US-ROCHE-1236398

PATIENT
  Sex: Female

DRUGS (4)
  1. OMEPRAZOL [Concomitant]
     Active Substance: OMEPRAZOLE
     Indication: IRRITABLE BOWEL SYNDROME
     Route: 065
  2. VALIUM [Suspect]
     Active Substance: DIAZEPAM
     Indication: IRRITABLE BOWEL SYNDROME
     Dosage: INFREQUENT USE
     Route: 065
  3. OMEPRAZOL [Concomitant]
     Active Substance: OMEPRAZOLE
     Indication: IRRITABLE BOWEL SYNDROME
  4. VALIUM [Suspect]
     Active Substance: DIAZEPAM
     Indication: IRRITABLE BOWEL SYNDROME
     Route: 065

REACTIONS (1)
  - Aura [Recovered/Resolved]
